FAERS Safety Report 19144675 (Version 2)
Quarter: 2021Q2

REPORT INFORMATION
  Report Type: Spontaneous
  Country: US (occurrence: US)
  Receive Date: 20210416
  Receipt Date: 20210604
  Transmission Date: 20210717
  Serious: Yes (Hospitalization, Other)
  Sender: FDA-Public Use
  Company Number: US-NOVOPROD-802548

PATIENT
  Age: 62 Year
  Sex: Female

DRUGS (1)
  1. TRESIBA [Suspect]
     Active Substance: INSULIN DEGLUDEC
     Indication: PRODUCT USED FOR UNKNOWN INDICATION
     Dosage: 48 IU, QD (EVERY MORNING)
     Route: 058
     Dates: start: 2019

REACTIONS (6)
  - Gallbladder obstruction [Recovered/Resolved]
  - Blood glucose decreased [Recovered/Resolved]
  - Gastric disorder [Not Recovered/Not Resolved]
  - Eating disorder [Unknown]
  - Biliary obstruction [Not Recovered/Not Resolved]
  - Pancreatic carcinoma [Not Recovered/Not Resolved]

NARRATIVE: CASE EVENT DATE: 202103
